FAERS Safety Report 8994389 (Version 1)
Quarter: 2012Q4

REPORT INFORMATION
  Report Type: Spontaneous
  Country: US (occurrence: None)
  Receive Date: 20121227
  Receipt Date: 20121227
  Transmission Date: 20130627
  Serious: Yes (Other)
  Sender: FDA-Public Use
  Company Number: None

PATIENT
  Age: 51 Year
  Sex: Female
  Weight: 56.7 kg

DRUGS (2)
  1. SERTRALINE 100 MG/ONCE DAILY NORTHSTAR [Suspect]
  2. SERTRALINE 100 MG/ONCE DAILY NORTHSTAR [Suspect]

REACTIONS (8)
  - Agitation [None]
  - Suicidal behaviour [None]
  - Feeling abnormal [None]
  - Depression [None]
  - Crying [None]
  - Abnormal behaviour [None]
  - Depressed mood [None]
  - Intentional self-injury [None]
